FAERS Safety Report 10899059 (Version 1)
Quarter: 2015Q1

REPORT INFORMATION
  Report Type: Spontaneous
  Country: CH (occurrence: CH)
  Receive Date: 20150309
  Receipt Date: 20150309
  Transmission Date: 20150721
  Serious: Yes (Hospitalization)
  Sender: FDA-Public Use
  Company Number: CH-TEVA-545195ISR

PATIENT
  Age: 90 Year
  Sex: Female
  Weight: 52 kg

DRUGS (10)
  1. ZANIPRESS [Interacting]
     Active Substance: ENALAPRIL MALEATE\LERCANIDIPINE HYDROCHLORIDE
     Indication: PULMONARY ARTERIAL HYPERTENSION
     Dosage: 2 DOSAGE FORMS DAILY; 1 DF = 10 MG ENALAPRIL + 10 MG LERCANIDIPINE
     Route: 048
     Dates: end: 20150207
  2. IRFEN 800 RETARD [Suspect]
     Active Substance: IBUPROFEN
     Dosage: 1600 MILLIGRAM DAILY;
     Route: 048
     Dates: end: 20150207
  3. DAFALGAN [Concomitant]
     Active Substance: ACETAMINOPHEN
     Route: 065
  4. METO ZEROK [Concomitant]
     Active Substance: METOPROLOL SUCCINATE
     Route: 065
  5. ASPIRIN CARDIO [Concomitant]
     Active Substance: ASPIRIN
     Route: 065
  6. AMLODIPINE [Concomitant]
     Active Substance: AMLODIPINE BESYLATE
     Route: 065
  7. FENTANYL HELVEPHARM TTS [Concomitant]
     Route: 065
  8. CALCIMAGON D3 [Concomitant]
     Active Substance: CALCIUM\CHOLECALCIFEROL
     Route: 065
  9. SORTIS [Concomitant]
     Active Substance: ATORVASTATIN
     Route: 065
  10. DIOVAN [Interacting]
     Active Substance: VALSARTAN
     Dosage: 160 MILLIGRAM DAILY;
     Route: 048
     Dates: end: 20150207

REACTIONS (5)
  - Hepatic cirrhosis [Unknown]
  - Acute kidney injury [Recovering/Resolving]
  - Off label use [Recovered/Resolved]
  - Pyelonephritis [Unknown]
  - Drug interaction [Recovered/Resolved]

NARRATIVE: CASE EVENT DATE: 2015
